FAERS Safety Report 7688479-3 (Version None)
Quarter: 2011Q3

REPORT INFORMATION
  Report Type: 
  Country: None (occurrence: None)
  Receive Date: 20110817
  Receipt Date: 20110812
  Transmission Date: 20111222
  Serious: Yes (Death)
  Sender: FDA-Public Use
  Company Number: ID-ROCHE-796489

PATIENT
  Age: 46 Year
  Sex: Male
  Weight: 53 kg

DRUGS (3)
  1. CISPLATIN [Concomitant]
     Indication: CHEMOTHERAPY
  2. GEMCITABINE [Concomitant]
     Indication: CHEMOTHERAPY
  3. AVASTIN [Suspect]
     Route: 042
     Dates: start: 20110701, end: 20110704

REACTIONS (1)
  - DEATH [None]
